FAERS Safety Report 8798112 (Version 1)
Quarter: 2012Q4

REPORT INFORMATION
  Report Type: 
  Country: US (occurrence: US)
  Receive Date: 20120920
  Receipt Date: 20120920
  Transmission Date: 20130627
  Serious: Yes (Other)
  Sender: FDA-Public Use
  Company Number: US-009507513-1209USA006143

PATIENT
  Age: 24 Year
  Sex: Female

DRUGS (5)
  1. SAPHRIS [Suspect]
     Dosage: UNK
  2. NAPROXEN [Concomitant]
  3. LAMICTAL [Concomitant]
  4. DEPAKOTE [Concomitant]
  5. KEPPRA [Concomitant]

REACTIONS (2)
  - Drooling [Unknown]
  - Dysphagia [Unknown]
